FAERS Safety Report 17482436 (Version 1)
Quarter: 2020Q1

REPORT INFORMATION
  Report Type: Spontaneous
  Country: US (occurrence: US)
  Receive Date: 20200302
  Receipt Date: 20200302
  Transmission Date: 20200409
  Serious: No
  Sender: FDA-Public Use
  Company Number: US-MYLANLABS-2020M1020003

PATIENT
  Age: 68 Year
  Sex: Female

DRUGS (1)
  1. CLONIDINE TRANSDERMAL SYSTEM [Suspect]
     Active Substance: CLONIDINE
     Indication: HYPERTENSION
     Dosage: UNK UNK, QW
     Route: 062
     Dates: end: 202002

REACTIONS (3)
  - Application site pruritus [Not Recovered/Not Resolved]
  - Blood pressure abnormal [Not Recovered/Not Resolved]
  - Application site erythema [Not Recovered/Not Resolved]

NARRATIVE: CASE EVENT DATE: 20200209
